FAERS Safety Report 11007264 (Version 2)
Quarter: 2015Q2

REPORT INFORMATION
  Report Type: Report from Study
  Country: GB (occurrence: GB)
  Receive Date: 20150409
  Receipt Date: 20150617
  Transmission Date: 20150821
  Serious: Yes (Other)
  Sender: FDA-Public Use
  Company Number: GB-BAXTER-2015BAX018552

PATIENT
  Sex: Male

DRUGS (2)
  1. TISSEEL LYO [Suspect]
     Active Substance: FIBRINOGEN HUMAN\THROMBIN HUMAN
     Indication: PROMOTION OF WOUND HEALING
     Route: 065
  2. TISSEEL LYO [Suspect]
     Active Substance: FIBRINOGEN HUMAN\THROMBIN HUMAN
     Route: 065

REACTIONS (3)
  - Pilonidal cyst [Recovered/Resolved]
  - Wound infection [Unknown]
  - Disease recurrence [Recovered/Resolved]
